FAERS Safety Report 24461401 (Version 1)
Quarter: 2024Q4

REPORT INFORMATION
  Report Type: Report from Study
  Country: US (occurrence: US)
  Receive Date: 20241018
  Receipt Date: 20241018
  Transmission Date: 20250115
  Serious: No
  Sender: ROCHE
  Company Number: US-ROCHE-3564324

PATIENT
  Age: 24 Year
  Sex: Female

DRUGS (2)
  1. RITUXAN [Suspect]
     Active Substance: RITUXIMAB
     Indication: Systemic lupus erythematosus
     Dosage: Q 14 DAYS X 2 DOSES, REPEATED Q 6 MONTHS. QTY 4-500MG VIALS RFLS 1
     Route: 041
  2. RITUXAN [Suspect]
     Active Substance: RITUXIMAB
     Indication: Lupus nephritis

REACTIONS (3)
  - Product prescribing error [Unknown]
  - Off label use [Unknown]
  - No adverse event [Unknown]
